FAERS Safety Report 8573248-2 (Version None)
Quarter: 2012Q3

REPORT INFORMATION
  Report Type: 
  Country: None (occurrence: None)
  Receive Date: 20120806
  Receipt Date: 20120727
  Transmission Date: 20120928
  Serious: Yes (Other)
  Sender: FDA-Public Use
  Company Number: US-ROCHE-1034704

PATIENT
  Sex: Male

DRUGS (2)
  1. ACCUTANE [Suspect]
     Indication: PRODUCT USED FOR UNKNOWN INDICATION
     Route: 048
     Dates: start: 20010304, end: 20030101
  2. TETRACYCLINE [Concomitant]
     Dosage: 500MG BID 2 DOSE FORM

REACTIONS (7)
  - ANXIETY [None]
  - BLOOD TRIGLYCERIDES DECREASED [None]
  - DERMATITIS [None]
  - BLOOD CHOLESTEROL INCREASED [None]
  - COLITIS ULCERATIVE [None]
  - INFLAMMATORY BOWEL DISEASE [None]
  - DRY SKIN [None]
